FAERS Safety Report 11029118 (Version 3)
Quarter: 2015Q2

REPORT INFORMATION
  Report Type: Spontaneous
  Country: US (occurrence: US)
  Receive Date: 20150414
  Receipt Date: 20150524
  Transmission Date: 20150821
  Serious: Yes (Hospitalization)
  Sender: FDA-Public Use
  Company Number: US-JNJFOC-20150311916

PATIENT
  Age: 65 Year
  Sex: Male
  Weight: 75.03 kg

DRUGS (2)
  1. DASATINIB [Suspect]
     Active Substance: DASATINIB
     Indication: PRODUCT USED FOR UNKNOWN INDICATION
     Route: 065
     Dates: start: 20140829, end: 20141104
  2. ABIRATERONE ACETATE [Suspect]
     Active Substance: ABIRATERONE ACETATE
     Indication: PROSTATE CANCER
     Route: 048
     Dates: start: 20140829, end: 20141104

REACTIONS (9)
  - Laryngeal injury [Unknown]
  - Fall [Recovering/Resolving]
  - Oedema [Unknown]
  - Muscle oedema [Unknown]
  - Paraesthesia [Unknown]
  - Skull fractured base [Unknown]
  - Eating disorder [Unknown]
  - Muscle rupture [Unknown]
  - Speech disorder [Unknown]

NARRATIVE: CASE EVENT DATE: 20141105
